FAERS Safety Report 4488038-X (Version None)
Quarter: 2004Q4

REPORT INFORMATION
  Report Type: 
  Country: None (occurrence: None)
  Receive Date: 20041028
  Receipt Date: 20000802
  Transmission Date: 20050328
  Serious: Yes (Congenital Anomaly)
  Sender: FDA-Public Use
  Company Number: US-GLAXOSMITHKLINE-A0125304A

PATIENT
  Sex: Female

DRUGS (1)
  1. ZOFRAN [Suspect]
     Indication: NAUSEA

REACTIONS (8)
  - CONGENITAL ANOMALY [None]
  - FAILURE TO THRIVE [None]
  - LOW SET EARS [None]
  - MICROCEPHALY [None]
  - RENAL CYST [None]
  - SMALL FOR DATES BABY [None]
  - SPEECH DISORDER DEVELOPMENTAL [None]
  - SYNDACTYLY [None]
